FAERS Safety Report 23830020 (Version 1)
Quarter: 2024Q2

REPORT INFORMATION
  Report Type: Spontaneous
  Country: BR (occurrence: BR)
  Receive Date: 20240508
  Receipt Date: 20240508
  Transmission Date: 20240715
  Serious: Yes (Life-Threatening)
  Sender: FDA-Public Use
  Company Number: BR-ABBVIE-5749726

PATIENT
  Sex: Female

DRUGS (4)
  1. LUMIGAN [Suspect]
     Active Substance: BIMATOPROST
     Indication: Glaucoma
     Dosage: FORM STRENGTH: 0.3MG/ML
     Route: 065
  2. LUMIGAN [Suspect]
     Active Substance: BIMATOPROST
     Dosage: FORM STRENGTH: 0.3MG/ML
     Route: 065
     Dates: start: 2016, end: 2022
  3. XALATAN [Suspect]
     Active Substance: LATANOPROST
     Indication: Glaucoma
     Route: 065
  4. TRAVATAN [Suspect]
     Active Substance: TRAVOPROST
     Indication: Glaucoma
     Route: 065

REACTIONS (5)
  - Bronchitis [Unknown]
  - Glaucoma [Unknown]
  - Eye disorder [Unknown]
  - Ear inflammation [Unknown]
  - Drug ineffective [Unknown]
